FAERS Safety Report 15960794 (Version 2)
Quarter: 2019Q1

REPORT INFORMATION
  Report Type: Spontaneous
  Country: US (occurrence: US)
  Receive Date: 20190214
  Receipt Date: 20190222
  Transmission Date: 20190417
  Serious: Yes (Other)
  Sender: FDA-Public Use
  Company Number: US-ASTRAZENECA-2018SF13929

PATIENT
  Age: 22367 Day
  Sex: Female

DRUGS (15)
  1. ACETAMINOPHEN. [Concomitant]
     Active Substance: ACETAMINOPHEN
  2. PRAVASTATIN. [Concomitant]
     Active Substance: PRAVASTATIN
  3. WARFARIN [Concomitant]
     Active Substance: WARFARIN
  4. ASPIRIN. [Concomitant]
     Active Substance: ASPIRIN
  5. CITALOPRAM [Concomitant]
     Active Substance: CITALOPRAM HYDROBROMIDE
  6. BUMETANIDE. [Concomitant]
     Active Substance: BUMETANIDE
  7. CRESTOR [Concomitant]
     Active Substance: ROSUVASTATIN CALCIUM
  8. NEXIUM [Suspect]
     Active Substance: ESOMEPRAZOLE MAGNESIUM
     Route: 048
     Dates: start: 20100101, end: 20160101
  9. AMITRIPTYLINE [Concomitant]
     Active Substance: AMITRIPTYLINE
  10. CARVEDILOL. [Concomitant]
     Active Substance: CARVEDILOL
  11. SPIRONOLACTONE. [Concomitant]
     Active Substance: SPIRONOLACTONE
  12. ALLOPURINOL. [Concomitant]
     Active Substance: ALLOPURINOL
  13. PRILOSEC [Suspect]
     Active Substance: OMEPRAZOLE MAGNESIUM
     Route: 048
  14. GABAPENTIN. [Concomitant]
     Active Substance: GABAPENTIN
  15. LISINOPRIL. [Concomitant]
     Active Substance: LISINOPRIL

REACTIONS (7)
  - End stage renal disease [Unknown]
  - Acute kidney injury [Unknown]
  - Chronic kidney disease [Unknown]
  - Nephrogenic anaemia [Unknown]
  - Hyperparathyroidism secondary [Unknown]
  - Renal injury [Unknown]
  - Nephropathy [Unknown]

NARRATIVE: CASE EVENT DATE: 20120604
